FAERS Safety Report 4488153-0 (Version None)
Quarter: 2004Q4

REPORT INFORMATION
  Report Type: 
  Country: None (occurrence: None)
  Receive Date: 20041022
  Receipt Date: 20041014
  Transmission Date: 20050328
  Serious: Yes (Life-Threatening, Hospitalization)
  Sender: FDA-Public Use
  Company Number: D01200403056

PATIENT
  Age: 68 Year
  Sex: Male

DRUGS (7)
  1. (CLOPIDOGREL) - TABLET - 75 MG [Suspect]
     Indication: ANGIOPATHY
     Dosage: 75 MG QD
     Route: 048
     Dates: start: 20040205
  2. (CLOPIDOGREL) - TABLET - 75 MG [Suspect]
     Indication: PROPHYLAXIS
     Dosage: 75 MG QD
     Route: 048
     Dates: start: 20040205
  3. ACETYLSALICYLIC ACID SRT [Concomitant]
  4. CALCIUM CHANNEL BLOCKER [Concomitant]
  5. CRESTOR [Concomitant]
  6. BETA-BLOCKERS [Concomitant]
  7. FUROSEMIDE [Concomitant]

REACTIONS (4)
  - AORTIC ANEURYSM RUPTURE [None]
  - CHOLECYSTITIS [None]
  - ENTEROCOCCAL BACTERAEMIA [None]
  - HAEMORRHAGE [None]
